FAERS Safety Report 9792132 (Version 1)
Quarter: 2013Q4

REPORT INFORMATION
  Report Type: Spontaneous
  Country: US (occurrence: None)
  Receive Date: 20131231
  Receipt Date: 20131231
  Transmission Date: 20140711
  Serious: Yes (Death)
  Sender: FDA-Public Use
  Company Number: None

PATIENT
  Age: 76 Year
  Sex: Male
  Weight: 102.3 kg

DRUGS (1)
  1. FERAHEME [Suspect]
     Indication: ANAEMIA
     Dosage: 510MG DAY 1 ABD  8 IVPUSH
     Dates: start: 20131210

REACTIONS (7)
  - Dizziness [None]
  - Unresponsive to stimuli [None]
  - Swelling face [None]
  - Anxiety [None]
  - Aggression [None]
  - Urinary incontinence [None]
  - Cyanosis [None]
